FAERS Safety Report 4295052-6 (Version None)
Quarter: 2004Q1

REPORT INFORMATION
  Report Type: 
  Country: None (occurrence: None)
  Receive Date: 20040211
  Receipt Date: 20040127
  Transmission Date: 20041129
  Serious: Yes (Hospitalization, Disabling)
  Sender: FDA-Public Use
  Company Number: 2003AP04334

PATIENT
  Age: 69 Year
  Sex: Female
  Weight: 47 kg

DRUGS (3)
  1. IRESSA [Suspect]
     Indication: GASTRIC CANCER
     Dosage: 250 MG DAILY PO
     Route: 048
     Dates: start: 20031111, end: 20031211
  2. IRESSA [Suspect]
     Indication: GASTRIC CANCER
     Dosage: 250 MG DAILY PO
     Route: 048
     Dates: start: 20031217
  3. RADIOTHERAPY [Suspect]
     Indication: GASTRIC CANCER
     Dosage: 1.8 GY/DAY
     Dates: start: 20031118

REACTIONS (4)
  - DYSPHAGIA [None]
  - HAEMATEMESIS [None]
  - NAUSEA [None]
  - VOMITING [None]
